FAERS Safety Report 4588752-1 (Version None)
Quarter: 2005Q1

REPORT INFORMATION
  Report Type: 
  Country: None (occurrence: None)
  Receive Date: 20050216
  Receipt Date: 20050127
  Transmission Date: 20050727
  Serious: Yes (Hospitalization)
  Sender: FDA-Public Use
  Company Number: US_0408104879

PATIENT
  Age: 41 Year
  Sex: Female
  Weight: 118 kg

DRUGS (30)
  1. ZYPREXA [Suspect]
     Indication: SCHIZOPHRENIA
     Dosage: 15 MG AT BEDTIME
     Dates: start: 20011212, end: 20020309
  2. ZESTRIL [Concomitant]
  3. CELEXA [Concomitant]
  4. CELEBREX [Concomitant]
  5. SINGULAIR (MONTELUKAST) [Concomitant]
  6. NEXIUM [Concomitant]
  7. SENOKOT (SENNA ALEXANDRINA) [Concomitant]
  8. TRAZODONE HCL [Concomitant]
  9. ZYRTEC [Concomitant]
  10. HYDROCHLOROTHIAZIDE [Concomitant]
  11. ATROVENT [Concomitant]
  12. POTASSIUM CHLORIDE [Concomitant]
  13. VITAMIN C [Concomitant]
  14. VITAMIN E (HERBAL OIL NOS) [Concomitant]
  15. GEODON [Concomitant]
  16. ALBUTEROL [Concomitant]
  17. ADVAIR DISKUS 100/50 [Concomitant]
  18. FLONASE [Concomitant]
  19. IBUPROFEN [Concomitant]
  20. HYDROCORTISONE, TOPICAL [Concomitant]
  21. CYCLOBENZAPRINE HCL [Concomitant]
  22. DESONIDE [Concomitant]
  23. CLOTRIMAZOLE [Concomitant]
  24. MULTI-VITAMIN [Concomitant]
  25. BENZONATATE [Concomitant]
  26. ACULAR [Concomitant]
  27. CITRUCEL (METHYLCELLULOSE) [Concomitant]
  28. DOCUSATE [Concomitant]
  29. LOTRISONE [Concomitant]
  30. HYDRALAZINE [Concomitant]

REACTIONS (17)
  - ASTHMA [None]
  - BRONCHITIS [None]
  - DIABETES MELLITUS [None]
  - EAR PAIN [None]
  - FATIGUE [None]
  - HEADACHE [None]
  - HYPERPHAGIA [None]
  - HYPOAESTHESIA [None]
  - IMPAIRED HEALING [None]
  - INCONTINENCE [None]
  - LIPASE INCREASED [None]
  - NAUSEA [None]
  - PARAESTHESIA [None]
  - PHARYNGITIS STREPTOCOCCAL [None]
  - VOMITING [None]
  - WEIGHT DECREASED [None]
  - WEIGHT INCREASED [None]
